FAERS Safety Report 4984883-2 (Version None)
Quarter: 2006Q2

REPORT INFORMATION
  Report Type: 
  Country: None (occurrence: None)
  Receive Date: 20060426
  Receipt Date: 20060426
  Transmission Date: 20061013
  Serious: Yes (Death, Hospitalization)
  Sender: FDA-Public Use
  Company Number: None

PATIENT
  Age: 28 Year
  Sex: Male
  Weight: 77.1115 kg

DRUGS (2)
  1. QUININE [Suspect]
     Indication: DIARRHOEA
     Dates: start: 19890110, end: 19890113
  2. QUININE [Suspect]
     Indication: MUSCLE SPASMS
     Dates: start: 19890110, end: 19890113

REACTIONS (4)
  - BODY TEMPERATURE INCREASED [None]
  - CARDIAC ARREST [None]
  - MULTI-ORGAN FAILURE [None]
  - VOMITING [None]
